FAERS Safety Report 7361418-0 (Version None)
Quarter: 2011Q1

REPORT INFORMATION
  Report Type: 
  Country: None (occurrence: None)
  Receive Date: 20110318
  Receipt Date: 20110221
  Transmission Date: 20110831
  Serious: No
  Sender: FDA-Public Use
  Company Number: US-B.I. PHARMACEUTICALS,INC./RIDGEFIELD-2010-BP-14172BP

PATIENT
  Sex: Female
  Weight: 83.01 kg

DRUGS (12)
  1. PRADAXA [Suspect]
     Indication: ANTICOAGULANT THERAPY
     Dosage: 300 MG
     Route: 048
     Dates: start: 20101102
  2. CALCIUM [Concomitant]
     Indication: PROPHYLAXIS
  3. LASIX [Concomitant]
     Indication: FLUID RETENTION
     Dosage: 40 MG
  4. SYNTHROID [Concomitant]
     Indication: HYPOTHYROIDISM
     Dosage: 75 MCH
  5. LORAZEPAM [Concomitant]
     Indication: SLEEP DISORDER
  6. KLOR-CON [Concomitant]
     Indication: PROPHYLAXIS
     Dosage: 10 MEQ
  7. INSULIN [Concomitant]
     Indication: DIABETES MELLITUS
  8. METOPROLOL SUCCINATE [Concomitant]
     Indication: HYPERTENSION
     Dosage: 25 MG
  9. PRADAXA [Suspect]
     Indication: ATRIAL FIBRILLATION
  10. LISINOPRIL [Concomitant]
     Indication: HYPERTENSION
     Dosage: 2.5 MG
  11. VITAMIN D [Concomitant]
     Indication: PROPHYLAXIS
     Dosage: 2000, 3 TIMES PER WEEK
  12. ASPIRIN [Concomitant]
     Indication: PROPHYLAXIS
     Dosage: 81 MG

REACTIONS (3)
  - HAEMORRHAGE SUBCUTANEOUS [None]
  - SKIN DISCOLOURATION [None]
  - CONTUSION [None]
